FAERS Safety Report 17046130 (Version 2)
Quarter: 2019Q4

REPORT INFORMATION
  Report Type: Report from Study
  Country: JP (occurrence: JP)
  Receive Date: 20191119
  Receipt Date: 20191128
  Transmission Date: 20200122
  Serious: Yes (Other)
  Sender: FDA-Public Use
  Company Number: JP-ROCHE-2474139

PATIENT
  Age: 55 Year
  Sex: Female
  Weight: 45 kg

DRUGS (2)
  1. ATEZOLIZUMAB. [Suspect]
     Active Substance: ATEZOLIZUMAB
     Route: 041
     Dates: start: 20191011, end: 20191101
  2. ATEZOLIZUMAB. [Suspect]
     Active Substance: ATEZOLIZUMAB
     Indication: NON-SMALL CELL LUNG CANCER
     Route: 041
     Dates: start: 20190621, end: 20190913

REACTIONS (2)
  - Adrenocorticotropic hormone deficiency [Recovered/Resolved with Sequelae]
  - Secondary adrenocortical insufficiency [Recovered/Resolved with Sequelae]

NARRATIVE: CASE EVENT DATE: 20191004
